FAERS Safety Report 21086393 (Version 1)
Quarter: 2022Q3

REPORT INFORMATION
  Report Type: Spontaneous
  Country: US (occurrence: US)
  Receive Date: 20220715
  Receipt Date: 20220715
  Transmission Date: 20221026
  Serious: No
  Sender: FDA-Public Use
  Company Number: US-ORGANON-O2207USA000891

PATIENT
  Age: 18 Year
  Sex: Female
  Weight: 61.224 kg

DRUGS (1)
  1. NEXPLANON [Suspect]
     Active Substance: ETONOGESTREL
     Indication: Contraception
     Dosage: 1 ROD/68 MG ONCE
     Route: 059
     Dates: start: 201903

REACTIONS (3)
  - Menstruation irregular [Not Recovered/Not Resolved]
  - Implant site pain [Not Recovered/Not Resolved]
  - Incorrect product administration duration [Unknown]

NARRATIVE: CASE EVENT DATE: 20220301
